FAERS Safety Report 5744776-X (Version None)
Quarter: 2008Q2

REPORT INFORMATION
  Report Type: 
  Country: None (occurrence: None)
  Receive Date: 20080520
  Receipt Date: 20080512
  Transmission Date: 20081010
  Serious: Yes (Other)
  Sender: FDA-Public Use
  Company Number: US-MERCK-0804USA03650

PATIENT
  Age: 5 Year
  Sex: Male
  Weight: 19 kg

DRUGS (8)
  1. SINGULAIR [Suspect]
     Indication: ASTHMA
     Route: 048
     Dates: start: 20040101, end: 20080101
  2. SINGULAIR [Suspect]
     Indication: WHEEZING
     Route: 048
     Dates: start: 20040101, end: 20080101
  3. ZYRTEC [Concomitant]
     Route: 065
  4. NASACORT AQ [Concomitant]
     Route: 065
  5. SODIUM CHLORIDE [Concomitant]
     Route: 065
  6. PULMICORT [Concomitant]
     Route: 065
  7. PULMICORT [Concomitant]
     Route: 065
  8. ALBUTEROL [Concomitant]
     Route: 065

REACTIONS (3)
  - COUGH [None]
  - NASAL OEDEMA [None]
  - SUICIDAL IDEATION [None]
